FAERS Safety Report 8890890 (Version 1)
Quarter: 2012Q4

REPORT INFORMATION
  Report Type: 
  Country: AU (occurrence: AU)
  Receive Date: 20121107
  Receipt Date: 20121107
  Transmission Date: 20130627
  Serious: Yes (Hospitalization, Other)
  Sender: FDA-Public Use
  Company Number: PHHY2012AU084777

PATIENT
  Age: 62 Year
  Sex: Male
  Weight: 180 kg

DRUGS (1)
  1. CLOZARIL [Suspect]
     Dosage: 300 mg, UNK
     Route: 048
     Dates: start: 20051213

REACTIONS (5)
  - Pneumonia [Recovering/Resolving]
  - Schizophrenia [Unknown]
  - Sleep apnoea syndrome [Unknown]
  - Obesity [Unknown]
  - Intestinal obstruction [Unknown]
